FAERS Safety Report 4621858-7 (Version None)
Quarter: 2005Q1

REPORT INFORMATION
  Report Type: 
  Country: None (occurrence: None)
  Receive Date: 20050329
  Receipt Date: 20050317
  Transmission Date: 20050727
  Serious: Yes (Death)
  Sender: FDA-Public Use
  Company Number: JP-BRISTOL-MYERS SQUIBB COMPANY-12911756

PATIENT
  Age: 64 Year
  Sex: Male

DRUGS (4)
  1. ENDOXAN [Suspect]
     Indication: PLEURAL MESOTHELIOMA MALIGNANT
  2. CISPLATIN [Suspect]
     Indication: PLEURAL MESOTHELIOMA MALIGNANT
  3. DOXORUBICIN HCL [Suspect]
     Indication: PLEURAL MESOTHELIOMA MALIGNANT
  4. RADIATION THERAPY [Suspect]
     Indication: PLEURAL MESOTHELIOMA MALIGNANT
     Dosage: 54 GY

REACTIONS (2)
  - CARDIAC FAILURE CONGESTIVE [None]
  - RESPIRATORY FAILURE [None]
